FAERS Safety Report 4743320-3 (Version None)
Quarter: 2005Q3

REPORT INFORMATION
  Report Type: 
  Country: None (occurrence: None)
  Receive Date: 20050811
  Receipt Date: 20050726
  Transmission Date: 20060218
  Serious: Yes (Other)
  Sender: FDA-Public Use
  Company Number: US-2005-014942

PATIENT
  Age: 64 Year
  Sex: Female

DRUGS (25)
  1. CLIMARA [Suspect]
     Indication: MENOPAUSAL SYMPTOMS
     Dosage: UNK MG/D, CONT, TRANSDERMAL
     Route: 062
  2. PREMARIN [Suspect]
     Indication: MENOPAUSAL SYMPTOMS
     Dates: start: 19930101
  3. PROVERA [Suspect]
     Indication: MENOPAUSAL SYMPTOMS
     Dates: start: 19930101
  4. PREMPRO [Suspect]
     Indication: MENOPAUSAL SYMPTOMS
     Dates: start: 19930101
  5. ESTROEN NOS (ESTROGEN NOS) [Suspect]
     Indication: MENOPAUSAL SYMPTOMS
     Dates: start: 19930101
  6. PROGESTERONE [Suspect]
     Indication: MENOPAUSAL SYMPTOMS
     Dates: start: 19930101
  7. MEDROXYPROGESTERONE ACETATE [Suspect]
     Indication: MENOPAUSAL SYMPTOMS
  8. CYCRIN [Suspect]
     Indication: MENOPAUSAL SYMPTOMS
  9. AYGESTIN [Suspect]
     Indication: MENOPAUSAL SYMPTOMS
  10. PREMPHASE (ESTROGENS  CONJUGATED, MEDROXYPROGESTERONE ACETATE) [Suspect]
     Indication: MENOPAUSAL SYMPTOMS
  11. FEMHRT [Suspect]
     Indication: MENOPAUSAL SYMPTOMS
  12. ACTIVELLA [Suspect]
     Indication: MENOPAUSAL SYMPTOMS
  13. COMBIPATCH [Concomitant]
     Indication: MENOPAUSAL SYMPTOMS
  14. ESTRACE [Suspect]
     Indication: MENOPAUSAL SYMPTOMS
  15. ESTRATEST [Suspect]
     Indication: MENOPAUSAL SYMPTOMS
  16. ORTHO TRI-CYCLEN [Concomitant]
     Indication: MENOPAUSAL SYMPTOMS
  17. ORTHO-PREFEST (NORGESTIMATE, ESTRADIOL) [Suspect]
     Indication: MENOPAUSAL SYMPTOMS
  18. VAGIFEM [Suspect]
     Indication: MENOPAUSAL SYMPTOMS
  19. ESTRADIOL [Suspect]
     Indication: MENOPAUSAL SYMPTOMS
  20. CENESTIN [Suspect]
     Indication: MENOPAUSAL SYMPTOMS
  21. ESTRADERM [Suspect]
     Indication: MENOPAUSAL SYMPTOMS
  22. VIVELLE [Suspect]
     Indication: MENOPAUSAL SYMPTOMS
  23. ESTRATAB [Suspect]
     Indication: MENOPAUSAL SYMPTOMS
  24. OGEN [Suspect]
     Indication: MENOPAUSAL SYMPTOMS
  25. ESTROPIPATE [Suspect]
     Indication: MENOPAUSAL SYMPTOMS

REACTIONS (5)
  - ANXIETY [None]
  - BREAST CANCER FEMALE [None]
  - DEFORMITY [None]
  - PAIN [None]
  - PSYCHIATRIC SYMPTOM [None]
